FAERS Safety Report 7577610-6 (Version None)
Quarter: 2011Q2

REPORT INFORMATION
  Report Type: 
  Country: None (occurrence: None)
  Receive Date: 20110628
  Receipt Date: 20110616
  Transmission Date: 20111010
  Serious: Yes (Hospitalization)
  Sender: FDA-Public Use
  Company Number: FR-KINGPHARMUSA00001-K201100726

PATIENT
  Sex: Male

DRUGS (15)
  1. TENORMIN [Suspect]
     Indication: INTENTIONAL OVERDOSE
     Dosage: 400 MG, SINGLE
     Dates: start: 20090701, end: 20090701
  2. ALTACE [Suspect]
     Indication: MYOCARDIAL ISCHAEMIA
     Dosage: 50 MG, SINGLE
     Route: 048
     Dates: start: 20090702, end: 20090702
  3. ATARAX [Suspect]
     Indication: DEPRESSION
     Dosage: UNK
     Route: 048
  4. BUSPAR [Suspect]
     Indication: DEPRESSION
     Dosage: UNK
     Route: 048
  5. ASPIRIN [Concomitant]
  6. GLUCOPHAGE [Suspect]
     Indication: INTENTIONAL OVERDOSE
     Dosage: 17000 MG, SINGLE
     Route: 048
     Dates: start: 20090701, end: 20090701
  7. FUROSEMIDE [Suspect]
     Indication: MYOCARDIAL ISCHAEMIA
     Dosage: 240 MG, SINGLE
     Route: 048
     Dates: start: 20090702, end: 20090702
  8. MIRTAZAPINE [Concomitant]
  9. TRIMEPRAZINE TARTRATE [Concomitant]
  10. LYRICA [Concomitant]
  11. ALTACE [Suspect]
     Indication: INTENTIONAL OVERDOSE
  12. TENORMIN [Suspect]
     Indication: MYOCARDIAL ISCHAEMIA
     Dosage: 400 MG, SINGLE
     Route: 048
     Dates: start: 20090702, end: 20090702
  13. GLUCOPHAGE [Suspect]
     Indication: TYPE 2 DIABETES MELLITUS
     Dosage: 17000 MG, SINGLE
  14. PRAVASTATIN [Concomitant]
  15. FUROSEMIDE [Suspect]
     Indication: INTENTIONAL OVERDOSE

REACTIONS (3)
  - INTENTIONAL OVERDOSE [None]
  - HYPOGLYCAEMIA [None]
  - SUICIDE ATTEMPT [None]
